FAERS Safety Report 5021480-7 (Version None)
Quarter: 2006Q2

REPORT INFORMATION
  Report Type: 
  Country: None (occurrence: None)
  Receive Date: 20060601
  Receipt Date: 20060309
  Transmission Date: 20061013
  Serious: No
  Sender: FDA-Public Use
  Company Number: 2006PV009933

PATIENT
  Age: 67 Year
  Sex: Male
  Weight: 106.5953 kg

DRUGS (5)
  1. BYETTA [Suspect]
     Indication: DIABETES MELLITUS NON-INSULIN-DEPENDENT
     Dosage: 10 MCG;BID;SC
     Route: 058
     Dates: start: 20051001
  2. GLYBURIDE [Concomitant]
  3. METFORMIN HCL [Concomitant]
  4. GLIPIZIDE ER [Concomitant]
  5. ALTACE [Concomitant]

REACTIONS (1)
  - EJACULATION DELAYED [None]
